FAERS Safety Report 12321162 (Version 1)
Quarter: 2016Q2

REPORT INFORMATION
  Report Type: Spontaneous
  Country: US (occurrence: None)
  Receive Date: 20160429
  Receipt Date: 20160429
  Transmission Date: 20160815
  Serious: Yes (Other)
  Sender: FDA-Public Use
  Company Number: None

PATIENT
  Age: 72 Year
  Sex: Female
  Weight: 77.11 kg

DRUGS (7)
  1. FISH OIL [Concomitant]
     Active Substance: FISH OIL
  2. VITAMIN D3 [Concomitant]
     Active Substance: CHOLECALCIFEROL
  3. WARFARIN [Concomitant]
     Active Substance: WARFARIN
  4. ESCITALOPRAM, 20 MG TEVA USA [Suspect]
     Active Substance: ESCITALOPRAM OXALATE
     Indication: MAJOR DEPRESSION
     Dosage: 1 TABLET(S) ONCE A DAY TAKEN BY MOUTH
     Route: 048
     Dates: start: 20151001, end: 20160428
  5. CALC [Concomitant]
  6. LEVOTHYROXINE. [Concomitant]
     Active Substance: LEVOTHYROXINE
  7. MULTI VIT/MINERAL [Concomitant]

REACTIONS (15)
  - Oedema peripheral [None]
  - Pruritus [None]
  - Gait disturbance [None]
  - Disturbance in attention [None]
  - Amnesia [None]
  - Discomfort [None]
  - Oedema [None]
  - Pain in extremity [None]
  - Rash erythematous [None]
  - Withdrawal syndrome [None]
  - Rash [None]
  - Swelling [None]
  - Burning sensation [None]
  - Flank pain [None]
  - Dry skin [None]

NARRATIVE: CASE EVENT DATE: 20160401
